FAERS Safety Report 11579221 (Version 11)
Quarter: 2021Q4

REPORT INFORMATION
  Report Type: Report from Study
  Country: US (occurrence: US)
  Receive Date: 20150930
  Receipt Date: 20211117
  Transmission Date: 20220303
  Serious: Yes (Hospitalization, Other)
  Sender: FDA-Public Use
  Company Number: US-SHIRE-US201512015

PATIENT
  Age: 7 Year
  Sex: Male
  Weight: 34 kg

DRUGS (16)
  1. IDURSULFASE [Suspect]
     Active Substance: IDURSULFASE
     Indication: Mucopolysaccharidosis II
     Dosage: 0.33 MG, 1X/WEEK
     Route: 041
     Dates: start: 20100122
  2. IDURSULFASE [Suspect]
     Active Substance: IDURSULFASE
     Dosage: 0.33 MILLIGRAM/KILOGRAM
     Route: 042
     Dates: start: 20100311
  3. IDURSULFASE [Suspect]
     Active Substance: IDURSULFASE
     Dosage: 0.5 MG/KG, 1X/WEEK
     Route: 041
     Dates: start: 20120605
  4. IDURSULFASE [Suspect]
     Active Substance: IDURSULFASE
     Dosage: 0.46 MG/KG, 1X/WEEK
     Route: 041
     Dates: start: 20130219, end: 20150101
  5. IDURSULFASE [Suspect]
     Active Substance: IDURSULFASE
     Dosage: 0.5 MG, 1X/WEEK
     Route: 041
     Dates: start: 20150327
  6. DIPHENHYDRAMINE [Concomitant]
     Active Substance: DIPHENHYDRAMINE
     Indication: Premedication
     Dosage: 25 MG, UNKNOWN
     Route: 048
  7. PREDNISOLONE [Concomitant]
     Active Substance: PREDNISOLONE
     Indication: Premedication
     Dosage: 30 MG, UNKNOWN
     Route: 048
  8. ACETAMINOPHEN [Concomitant]
     Active Substance: ACETAMINOPHEN
     Indication: Premedication
     Dosage: 10-15 MG/KG/DOSE, UNKNOWN
     Route: 065
  9. ACETAMINOPHEN [Concomitant]
     Active Substance: ACETAMINOPHEN
     Indication: Pyrexia
  10. RISPERIDONE [Concomitant]
     Active Substance: RISPERIDONE
     Indication: Agitation
     Dosage: 0.5 MG, 2X/DAY:BID
     Route: 065
  11. ENALAPRIL [Concomitant]
     Active Substance: ENALAPRIL
     Indication: Product used for unknown indication
     Dosage: 1.25 MG, 2X/DAY:BID
     Route: 048
  12. IBUPROFEN [Concomitant]
     Active Substance: IBUPROFEN
     Indication: Pain
     Dosage: 300 MG, AS REQD (Q6H)
     Route: 048
  13. IBUPROFEN [Concomitant]
     Active Substance: IBUPROFEN
     Indication: Pyrexia
     Dosage: 300 MG, UNKNOWN
     Route: 065
     Dates: start: 20150921
  14. EPIPEN [Concomitant]
     Active Substance: EPINEPHRINE
     Indication: Anaphylaxis treatment
     Dosage: 0.3 MG, UNKNOWN
     Route: 065
     Dates: start: 20150921, end: 20150921
  15. EPIPEN [Concomitant]
     Active Substance: EPINEPHRINE
     Indication: Stridor
     Dosage: 0.3 MG, AS REQ^D
     Route: 065
  16. EPIPEN [Concomitant]
     Active Substance: EPINEPHRINE
     Indication: Anaphylactic reaction

REACTIONS (10)
  - Cellulitis [Recovered/Resolved]
  - Stridor [Recovered/Resolved]
  - Rash erythematous [Recovering/Resolving]
  - Rash pruritic [Recovering/Resolving]
  - Pyrexia [Recovered/Resolved]
  - Urticaria [Recovered/Resolved]
  - Dyspnoea [Recovered/Resolved]
  - Blood pressure systolic decreased [Recovered/Resolved]
  - Eye swelling [Recovered/Resolved]
  - Lip swelling [Recovered/Resolved]

NARRATIVE: CASE EVENT DATE: 20130320
